FAERS Safety Report 5925517-X (Version None)
Quarter: 2008Q4

REPORT INFORMATION
  Report Type: 
  Country: None (occurrence: None)
  Receive Date: 20081021
  Receipt Date: 20081014
  Transmission Date: 20090506
  Serious: Yes (Other)
  Sender: FDA-Public Use
  Company Number: PHHY2008US19624

PATIENT
  Sex: Female

DRUGS (1)
  1. LIORESAL [Suspect]
     Indication: MUSCLE SPASTICITY
     Dosage: 125 UG, QD
     Route: 037

REACTIONS (4)
  - BURNING SENSATION [None]
  - FALL [None]
  - FIBROSIS [None]
  - NEURALGIA [None]
